FAERS Safety Report 15470740 (Version 2)
Quarter: 2018Q4

REPORT INFORMATION
  Report Type: Spontaneous
  Country: US (occurrence: US)
  Receive Date: 20181005
  Receipt Date: 20181027
  Transmission Date: 20190205
  Serious: Yes (Other)
  Sender: FDA-Public Use
  Company Number: US-009507513-1810USA001233

PATIENT
  Age: 22 Year
  Sex: Female
  Weight: 75.28 kg

DRUGS (1)
  1. NEXPLANON [Suspect]
     Active Substance: ETONOGESTREL
     Indication: CONTRACEPTION
     Dosage: 1 IMPLANT (68 MG), UNK
     Route: 059
     Dates: start: 20170815, end: 20181011

REACTIONS (5)
  - Device kink [Recovered/Resolved]
  - Pregnancy with implant contraceptive [Unknown]
  - Device breakage [Recovered/Resolved]
  - Unintended pregnancy [Unknown]
  - Complication of device removal [Recovered/Resolved]

NARRATIVE: CASE EVENT DATE: 20180928
